FAERS Safety Report 11108726 (Version 1)
Quarter: 2015Q2

REPORT INFORMATION
  Report Type: Spontaneous
  Country: US (occurrence: None)
  Receive Date: 20150511
  Receipt Date: 20150511
  Transmission Date: 20150821
  Serious: No
  Sender: FDA-Public Use
  Company Number: None

PATIENT
  Age: 54 Year
  Sex: Female
  Weight: 87.09 kg

DRUGS (7)
  1. ZESTRIL [Concomitant]
     Active Substance: LISINOPRIL
  2. DITROPAN XL [Concomitant]
     Active Substance: OXYBUTYNIN CHLORIDE
  3. PROTONIX [Concomitant]
     Active Substance: PANTOPRAZOLE SODIUM
  4. HYGROTON [Concomitant]
     Active Substance: CHLORTHALIDONE
  5. TOPERAMATE [Suspect]
     Active Substance: TOPIRAMATE
     Indication: MIGRAINE
     Dosage: 11/17 25MG/50MG 2 PILLS BID BID BY MOUTH??THERAPY?11/17/15-1/9/15
     Route: 048
     Dates: end: 20150109
  6. DURI/KILOREN [Concomitant]
  7. LEVOTHYROXINE [Concomitant]
     Active Substance: LEVOTHYROXINE

REACTIONS (17)
  - Irritability [None]
  - Urinary retention [None]
  - Unevaluable event [None]
  - Pain [None]
  - Renal failure [None]
  - Insomnia [None]
  - Dark circles under eyes [None]
  - Back pain [None]
  - Abasia [None]
  - Mood altered [None]
  - Contusion [None]
  - Pruritus [None]
  - Decreased appetite [None]
  - Mental disorder [None]
  - Crying [None]
  - Speech disorder [None]
  - Myalgia [None]
